FAERS Safety Report 13080788 (Version 3)
Quarter: 2017Q2

REPORT INFORMATION
  Report Type: Spontaneous
  Country: US (occurrence: US)
  Receive Date: 20170103
  Receipt Date: 20170403
  Transmission Date: 20170830
  Serious: Yes (Hospitalization, Other)
  Sender: FDA-Public Use
  Company Number: US-PFIZER INC-2016595519

PATIENT
  Age: 90 Year
  Sex: Female

DRUGS (1)
  1. NEURONTIN [Suspect]
     Active Substance: GABAPENTIN
     Dosage: UNK
     Dates: start: 20161123

REACTIONS (3)
  - Musculoskeletal discomfort [Not Recovered/Not Resolved]
  - Neoplasm [Not Recovered/Not Resolved]
  - Crohn^s disease [Not Recovered/Not Resolved]
